FAERS Safety Report 10072248 (Version 2)
Quarter: 2014Q2

REPORT INFORMATION
  Report Type: Spontaneous
  Country: RU (occurrence: RU)
  Receive Date: 20140411
  Receipt Date: 20140411
  Transmission Date: 20141212
  Serious: Yes (Life-Threatening, Other)
  Sender: FDA-Public Use
  Company Number: RU-ASTRAZENECA-2014SE19192

PATIENT
  Age: 2 Month
  Sex: Female

DRUGS (1)
  1. MERONEM [Suspect]
     Indication: ENCEPHALITIS
     Route: 042
     Dates: start: 2013

REACTIONS (2)
  - Drug ineffective for unapproved indication [Recovered/Resolved]
  - Off label use [Unknown]
